FAERS Safety Report 10984282 (Version 2)
Quarter: 2015Q2

REPORT INFORMATION
  Report Type: Spontaneous
  Country: FR (occurrence: FR)
  Receive Date: 20150403
  Receipt Date: 20150409
  Transmission Date: 20150821
  Serious: Yes (Life-Threatening, Hospitalization)
  Sender: FDA-Public Use
  Company Number: FR-PFIZER INC-2015117164

PATIENT
  Age: 81 Year
  Sex: Male
  Weight: 94 kg

DRUGS (3)
  1. DIGOXINE NATIVELLE [Suspect]
     Active Substance: DIGOXIN
     Route: 065
     Dates: end: 201206
  2. ATENOLOL. [Suspect]
     Active Substance: ATENOLOL
     Route: 065
     Dates: end: 201206
  3. MONO-TILDIEM [Suspect]
     Active Substance: DILTIAZEM HYDROCHLORIDE
     Route: 065
     Dates: end: 201206

REACTIONS (6)
  - Acute kidney injury [Unknown]
  - Cardioactive drug level increased [Recovered/Resolved]
  - Overdose [Recovered/Resolved]
  - Bradycardia [Recovered/Resolved]
  - Hyperkalaemia [Unknown]
  - Cardiac failure [Recovered/Resolved]

NARRATIVE: CASE EVENT DATE: 201206
